FAERS Safety Report 10178013 (Version 1)
Quarter: 2014Q2

REPORT INFORMATION
  Report Type: Spontaneous
  Country: CN (occurrence: CN)
  Receive Date: 20140517
  Receipt Date: 20140517
  Transmission Date: 20141212
  Serious: Yes (Death, Other)
  Sender: FDA-Public Use
  Company Number: CN-ROCHE-1400320

PATIENT
  Age: 40 Year
  Sex: Male

DRUGS (6)
  1. CEFTRIAXONE SODIUM [Suspect]
     Indication: DIZZINESS
     Route: 041
  2. CEFTRIAXONE SODIUM [Suspect]
     Indication: CHEST DISCOMFORT
     Route: 030
  3. CEFTRIAXONE SODIUM [Suspect]
     Indication: NEURALGIA
  4. DANSHEN [Suspect]
     Indication: DIZZINESS
     Route: 065
  5. DANSHEN [Suspect]
     Indication: CHEST DISCOMFORT
  6. DANSHEN [Suspect]
     Indication: NEURALGIA

REACTIONS (4)
  - Hypersensitivity [Not Recovered/Not Resolved]
  - Acute respiratory failure [Fatal]
  - Circulatory collapse [Fatal]
  - Myocarditis [None]
